FAERS Safety Report 26101787 (Version 1)
Quarter: 2025Q4

REPORT INFORMATION
  Report Type: Spontaneous
  Country: CN (occurrence: CN)
  Receive Date: 20251128
  Receipt Date: 20251128
  Transmission Date: 20260118
  Serious: Yes (Hospitalization, Other)
  Sender: SANDOZ
  Company Number: CN-002147023-NVSC2025CN175231

PATIENT
  Age: 86 Year
  Sex: Male
  Weight: 63 kg

DRUGS (3)
  1. DAPAGLIFLOZIN [Suspect]
     Active Substance: DAPAGLIFLOZIN
     Indication: Diabetes mellitus
     Dosage: 10 MG
     Route: 048
     Dates: start: 20231228, end: 20251101
  2. ENTRESTO [Suspect]
     Active Substance: SACUBITRIL\VALSARTAN
     Indication: Hypertension
     Dosage: 100 MG, QD
     Route: 048
     Dates: start: 20231228, end: 20251101
  3. ROSUVASTATIN CALCIUM [Suspect]
     Active Substance: ROSUVASTATIN CALCIUM
     Indication: Arteriosclerotic retinopathy
     Dosage: 10 MG, QD
     Route: 048
     Dates: start: 20231228, end: 20251101

REACTIONS (27)
  - Hepatic function abnormal [Recovering/Resolving]
  - Lacunar infarction [Unknown]
  - Cerebral arteriosclerosis [Unknown]
  - Cerebral atrophy [Unknown]
  - Arteriosclerosis coronary artery [Unknown]
  - Aortic arteriosclerosis [Unknown]
  - Dilatation intrahepatic duct acquired [Unknown]
  - B-cell lymphoma stage III [Unknown]
  - Perinephric collection [Unknown]
  - Fibrin D dimer increased [Unknown]
  - C-reactive protein increased [Unknown]
  - White blood cell count increased [Unknown]
  - Platelet count decreased [Unknown]
  - Central nervous system lesion [Unknown]
  - Pulmonary calcification [Unknown]
  - Pneumonitis [Unknown]
  - Liver disorder [Unknown]
  - Cholecystitis [Unknown]
  - Cholelithiasis [Unknown]
  - Urinary occult blood positive [Unknown]
  - Specific gravity urine abnormal [Unknown]
  - Urine glucose/creatinine ratio increased [Unknown]
  - Abdominal pain upper [Recovering/Resolving]
  - Troponin I decreased [Unknown]
  - Procalcitonin increased [Unknown]
  - Urine ketone body present [Unknown]
  - Dizziness [Recovered/Resolved]

NARRATIVE: CASE EVENT DATE: 20251101
